FAERS Safety Report 8295196-8 (Version None)
Quarter: 2012Q2

REPORT INFORMATION
  Report Type: 
  Country: None (occurrence: None)
  Receive Date: 20120418
  Receipt Date: 20120409
  Transmission Date: 20120825
  Serious: Yes (Hospitalization)
  Sender: FDA-Public Use
  Company Number: JP-VERTEX PHARMACEUTICALS INC.-AE-2012-005288

PATIENT
  Age: 69 Year
  Sex: Male

DRUGS (4)
  1. REBETOL [Concomitant]
     Route: 048
     Dates: end: 20120331
  2. PEG-INTRON [Concomitant]
     Route: 051
     Dates: end: 20120331
  3. FEBURIC [Concomitant]
     Route: 048
  4. TELAVIC (TELAPREVIR) [Suspect]
     Route: 048
     Dates: start: 20120302, end: 20120331

REACTIONS (2)
  - ACUTE RESPIRATORY DISTRESS SYNDROME [None]
  - PNEUMONIA [None]
